FAERS Safety Report 8916109 (Version 1)
Quarter: 2012Q4

REPORT INFORMATION
  Report Type: 
  Country: DE (occurrence: DE)
  Receive Date: 20121120
  Receipt Date: 20121120
  Transmission Date: 20130627
  Serious: Yes (Other)
  Sender: FDA-Public Use
  Company Number: GXKR2012DE003497

PATIENT
  Sex: Male

DRUGS (2)
  1. CLINDAMYCIN [Suspect]
     Indication: ERYSIPELAS
     Dosage: UNK UKN, UNK
     Dates: start: 2009
  2. ALCOHOL [Suspect]

REACTIONS (2)
  - Gait disturbance [Not Recovered/Not Resolved]
  - Polyneuropathy [Not Recovered/Not Resolved]
